FAERS Safety Report 6675059-1 (Version None)
Quarter: 2010Q2

REPORT INFORMATION
  Report Type: 
  Country: None (occurrence: None)
  Receive Date: 20100409
  Receipt Date: 20100330
  Transmission Date: 20101027
  Serious: Yes (Other)
  Sender: FDA-Public Use
  Company Number: US-JNJCH-2010008240

PATIENT
  Sex: Female

DRUGS (1)
  1. FRESHBURST LISTERINE MOUTHWASH [Suspect]
     Indication: DENTAL DISORDER PROPHYLAXIS
     Dosage: TEXT:THREE TEASPOONFULS TWICE PER DAY
     Route: 048

REACTIONS (2)
  - APPLICATION SITE PAIN [None]
  - OROPHARYNGEAL BLISTERING [None]
